FAERS Safety Report 9849962 (Version 1)
Quarter: 2014Q1

REPORT INFORMATION
  Report Type: Spontaneous
  Country: US (occurrence: None)
  Receive Date: 20140124
  Receipt Date: 20140124
  Transmission Date: 20141002
  Serious: Yes (Other)
  Sender: FDA-Public Use
  Company Number: None

PATIENT
  Age: 57 Year
  Sex: Male
  Weight: 83.92 kg

DRUGS (8)
  1. MIRVASO [Suspect]
     Indication: ROSACEA
     Route: 061
     Dates: start: 20131225, end: 20140101
  2. NORVIR [Concomitant]
  3. EPIVIR [Concomitant]
  4. LIPITOR [Concomitant]
  5. RETROVIR [Concomitant]
  6. CORGARD [Concomitant]
  7. VITAMIN D [Concomitant]
  8. ASPIRIN 81 MG [Concomitant]

REACTIONS (2)
  - Erythema [None]
  - Condition aggravated [None]
